FAERS Safety Report 16948289 (Version 2)
Quarter: 2019Q4

REPORT INFORMATION
  Report Type: Spontaneous
  Country: MY (occurrence: MY)
  Receive Date: 20191022
  Receipt Date: 20191025
  Transmission Date: 20200122
  Serious: Yes (Other)
  Sender: FDA-Public Use
  Company Number: MY-CELGENEUS-MYS-20191006288

PATIENT
  Age: 62 Year
  Sex: Male
  Weight: 47 kg

DRUGS (23)
  1. REVLIMID [Suspect]
     Active Substance: LENALIDOMIDE
     Indication: PLASMA CELL MYELOMA
     Dosage: MAINTENANCE
     Route: 048
  2. DEXAMETHASONE. [Concomitant]
     Active Substance: DEXAMETHASONE
     Dosage: MAINTENANCE
     Route: 065
  3. DEXAMETHASONE. [Concomitant]
     Active Substance: DEXAMETHASONE
     Dosage: VDT-PACE
     Route: 065
     Dates: start: 20190308
  4. CARDIPRIN [Concomitant]
     Indication: PRODUCT USED FOR UNKNOWN INDICATION
     Dosage: 1 TABLET
     Route: 065
     Dates: start: 201909
  5. ZOMETA [Concomitant]
     Active Substance: ZOLEDRONIC ACID
     Indication: PLASMA CELL MYELOMA
     Dosage: VTD
     Route: 041
     Dates: start: 20180404, end: 20180817
  6. VELCADE [Concomitant]
     Active Substance: BORTEZOMIB
     Dosage: VDT-PACE
     Route: 065
     Dates: start: 20190308
  7. CYCLOPHOSPHAMIDE. [Concomitant]
     Active Substance: CYCLOPHOSPHAMIDE
     Indication: PLASMA CELL MYELOMA
     Dosage: VDT-PACE
     Route: 065
     Dates: start: 20190308
  8. VELCADE [Concomitant]
     Active Substance: BORTEZOMIB
     Indication: PLASMA CELL MYELOMA
     Dosage: VTD
     Route: 058
     Dates: start: 20180404, end: 20180817
  9. DEXAMETHASONE. [Concomitant]
     Active Substance: DEXAMETHASONE
     Dosage: VTD
     Route: 065
     Dates: start: 20180404, end: 20180817
  10. ETOPOSIDE. [Concomitant]
     Active Substance: ETOPOSIDE
     Indication: PLASMA CELL MYELOMA
     Dosage: VDT-PACE
     Route: 065
     Dates: start: 20190308
  11. REVLIMID [Suspect]
     Active Substance: LENALIDOMIDE
     Dosage: IRD
     Route: 048
     Dates: start: 201906
  12. THALIDOMIDE [Suspect]
     Active Substance: THALIDOMIDE
     Indication: PLASMA CELL MYELOMA
     Dosage: VTD
     Route: 048
     Dates: start: 20180404, end: 20180817
  13. DEXAMETHASONE. [Concomitant]
     Active Substance: DEXAMETHASONE
     Indication: PLASMA CELL MYELOMA
     Dosage: 40 MILLIGRAM
     Route: 065
  14. DEXAMETHASONE. [Concomitant]
     Active Substance: DEXAMETHASONE
     Dosage: IRD
     Route: 065
     Dates: start: 201906
  15. VELCADE [Concomitant]
     Active Substance: BORTEZOMIB
     Dosage: PAD-R
     Route: 065
     Dates: start: 20190506
  16. CISPLATIN. [Concomitant]
     Active Substance: CISPLATIN
     Indication: PLASMA CELL MYELOMA
     Dosage: VDT-PACE
     Route: 065
     Dates: start: 20190308
  17. DOXORUBICIN [Concomitant]
     Active Substance: DOXORUBICIN
     Indication: PLASMA CELL MYELOMA
     Dosage: PAD-R
     Route: 065
     Dates: start: 20190506
  18. IXAZOMIB [Concomitant]
     Active Substance: IXAZOMIB
     Indication: PLASMA CELL MYELOMA
     Dosage: IRD
     Route: 065
     Dates: start: 201906
  19. REVLIMID [Suspect]
     Active Substance: LENALIDOMIDE
     Dosage: PAD-R
     Route: 048
     Dates: start: 20190506
  20. THALIDOMIDE [Suspect]
     Active Substance: THALIDOMIDE
     Dosage: VDT-PACE
     Route: 048
     Dates: start: 20190308
  21. DEXAMETHASONE. [Concomitant]
     Active Substance: DEXAMETHASONE
     Dosage: PAD-R
     Route: 065
     Dates: start: 20190506
  22. ZOMETA [Concomitant]
     Active Substance: ZOLEDRONIC ACID
     Dosage: MAINTENANCE
     Route: 041
  23. HYDROXYUREA. [Concomitant]
     Active Substance: HYDROXYUREA
     Indication: PRODUCT USED FOR UNKNOWN INDICATION
     Dosage: 1 GRAM
     Route: 065
     Dates: start: 201909

REACTIONS (2)
  - Myelodysplastic syndrome [Unknown]
  - Chronic myeloid leukaemia [Unknown]
